FAERS Safety Report 6073959-7 (Version None)
Quarter: 2009Q1

REPORT INFORMATION
  Report Type: 
  Country: None (occurrence: None)
  Receive Date: 20090211
  Receipt Date: 20090204
  Transmission Date: 20090719
  Serious: Yes (Other)
  Sender: FDA-Public Use
  Company Number: PHHY2009JP03893

PATIENT
  Sex: Male

DRUGS (4)
  1. NEORAL [Suspect]
     Indication: DERMATITIS ATOPIC
     Dosage: 250 MG DAILY
     Route: 048
     Dates: start: 20081217
  2. NEORAL [Suspect]
     Dosage: 125 MG DAILY
     Route: 048
  3. NEORAL [Suspect]
     Dosage: 250 MG DAILY
     Route: 048
     Dates: end: 20090126
  4. NEORAL [Suspect]
     Dosage: 3 MG/KG

REACTIONS (2)
  - DERMATITIS ATOPIC [None]
  - KAPOSI'S VARICELLIFORM ERUPTION [None]
